FAERS Safety Report 6211015-5 (Version None)
Quarter: 2009Q2

REPORT INFORMATION
  Report Type: 
  Country: None (occurrence: None)
  Receive Date: 20090602
  Receipt Date: 20090527
  Transmission Date: 20091009
  Serious: Yes (Other)
  Sender: FDA-Public Use
  Company Number: US-CELGENEUS-163-21880-09021574

PATIENT
  Sex: Male

DRUGS (2)
  1. REVLIMID [Suspect]
     Indication: MULTIPLE MYELOMA
     Route: 048
     Dates: start: 20090206
  2. REVLIMID [Suspect]
     Route: 048
     Dates: start: 20080201, end: 20090202

REACTIONS (3)
  - CATARACT [None]
  - DIZZINESS [None]
  - HYPERTENSION [None]
